FAERS Safety Report 11256353 (Version 4)
Quarter: 2015Q4

REPORT INFORMATION
  Report Type: Spontaneous
  Country: US (occurrence: US)
  Receive Date: 20150709
  Receipt Date: 20151119
  Transmission Date: 20160304
  Serious: Yes (Other)
  Sender: FDA-Public Use
  Company Number: US-ABBVIE-15P-163-1420895-00

PATIENT
  Age: 22 Year
  Sex: Male

DRUGS (1)
  1. CREON [Suspect]
     Active Substance: PANCRELIPASE AMYLASE\PANCRELIPASE LIPASE\PANCRELIPASE PROTEASE
     Indication: CYSTIC FIBROSIS
     Route: 065

REACTIONS (4)
  - Transplant rejection [Unknown]
  - Fatigue [Unknown]
  - Lung infection [Unknown]
  - Lung transplant [Unknown]

NARRATIVE: CASE EVENT DATE: 20141110
